FAERS Safety Report 9524818 (Version 1)
Quarter: 2013Q1

REPORT INFORMATION
  Report Type: Spontaneous
  Country: US (occurrence: None)
  Receive Date: 20130314
  Receipt Date: 20130314
  Transmission Date: 20140127
  Serious: No
  Sender: FDA-Public Use
  Company Number: 1301USA003220

PATIENT
  Age: 44 Year
  Sex: Female

DRUGS (7)
  1. VICTRELIS (BOCEPREVIR) CAPSULE, 200MG [Suspect]
     Route: 048
     Dates: start: 201211
  2. RIBASPHERE (RIBAVIRIN) [Suspect]
  3. PEGASYS (PEGINTERFERON ALFA-2A) [Suspect]
  4. CENTRUM (MINERALS (UNSPECIFIED) (+) VITAMINS (UNSPECIFIED)) (MINERALS (UNSPECIFIED), VITAMINS (UNSPECIFIED)) [Concomitant]
  5. METFORMIN (METFORMIN) [Concomitant]
  6. LISINOPRIL (LISINOPRIL) [Concomitant]
  7. ASPIRIN (ASPIRIN) [Concomitant]

REACTIONS (1)
  - Blood creatinine increased [None]
